FAERS Safety Report 7780872-3 (Version None)
Quarter: 2011Q3

REPORT INFORMATION
  Report Type: 
  Country: None (occurrence: None)
  Receive Date: 20110923
  Receipt Date: 20110912
  Transmission Date: 20111222
  Serious: Yes (Other)
  Sender: FDA-Public Use
  Company Number: US-001970

PATIENT
  Sex: Male
  Weight: 85.7298 kg

DRUGS (5)
  1. ALBUTEROL [Concomitant]
  2. KUVAN [Suspect]
     Indication: PHENYLKETONURIA
     Dosage: (1500 MG QD ORAL)
     Route: 048
     Dates: start: 20080301
  3. MULTI-VITAMINS [Concomitant]
  4. NUTRIENTS WITHOUT PHENYLALANINE [Concomitant]
  5. STRATTERA [Concomitant]

REACTIONS (5)
  - PEPTIC ULCER [None]
  - BLOOD ALBUMIN DECREASED [None]
  - GASTROOESOPHAGEAL REFLUX DISEASE [None]
  - ABDOMINAL PAIN [None]
  - BARRETT'S OESOPHAGUS [None]
